FAERS Safety Report 5801284-5 (Version None)
Quarter: 2008Q3

REPORT INFORMATION
  Report Type: 
  Country: None (occurrence: None)
  Receive Date: 20080703
  Receipt Date: 20080703
  Transmission Date: 20090109
  Serious: Yes (Other)
  Sender: FDA-Public Use
  Company Number: None

PATIENT
  Age: 84 Year
  Sex: Female
  Weight: 43.0917 kg

DRUGS (1)
  1. ACTONEL [Suspect]
     Indication: OSTEOPOROSIS
     Dosage: 30 MG 1X WEEK
     Dates: start: 20080523

REACTIONS (4)
  - CHEST DISCOMFORT [None]
  - CHILLS [None]
  - FATIGUE [None]
  - THROAT IRRITATION [None]
